FAERS Safety Report 5151881-8 (Version None)
Quarter: 2006Q4

REPORT INFORMATION
  Report Type: 
  Country: None (occurrence: None)
  Receive Date: 20061009
  Receipt Date: 20061030
  Transmission Date: 20070319
  Serious: Yes (Other)
  Sender: FDA-Public Use
  Company Number: 2006130433

PATIENT
  Age: 57 Year
  Sex: Female

DRUGS (4)
  1. ALDACTONE [Suspect]
     Indication: CARDIAC DISORDER
     Dosage: 25 MG (25 MG, QD), ORAL
     Route: 048
     Dates: start: 20061014
  2. CAPOTEN [Suspect]
     Indication: HYPERTENSION
     Dosage: 40 MG (40 MG, QD), ORAL
     Route: 048
     Dates: start: 20061014, end: 20061018
  3. LASIX [Concomitant]
  4. DIAZEPAM [Concomitant]

REACTIONS (3)
  - COUGH [None]
  - OEDEMA PERIPHERAL [None]
  - URINARY RETENTION [None]
